FAERS Safety Report 9645413 (Version 2)
Quarter: 2013Q4

REPORT INFORMATION
  Report Type: Spontaneous
  Country: FR (occurrence: FR)
  Receive Date: 20131025
  Receipt Date: 20131129
  Transmission Date: 20140711
  Serious: Yes (Disabling)
  Sender: FDA-Public Use
  Company Number: FR-SA-2013SA104705

PATIENT
  Age: 59 Year
  Sex: Female

DRUGS (13)
  1. TAXOTERE [Suspect]
     Indication: BREAST CANCER
     Route: 042
     Dates: start: 201306, end: 201308
  2. EPIRUBICIN [Suspect]
     Indication: BREAST CANCER
     Route: 042
     Dates: start: 201303, end: 20130615
  3. FLUOROURACIL [Suspect]
     Indication: BREAST CANCER
     Route: 042
     Dates: start: 201306, end: 20130615
  4. ENDOXAN [Suspect]
     Indication: BREAST CANCER
     Route: 042
     Dates: start: 201303, end: 20130615
  5. IRBESARTAN [Concomitant]
  6. KEPPRA [Concomitant]
  7. BISOPROLOL [Concomitant]
  8. DIFFU K [Concomitant]
  9. SERESTA [Concomitant]
  10. DOLIPRANE [Concomitant]
  11. BURINEX [Concomitant]
  12. RABEPRAZOLE [Concomitant]
  13. ALLOPURINOL [Concomitant]
     Dosage: START DATE: MORE THAN 1 YEAR

REACTIONS (2)
  - Lung disorder [Recovered/Resolved]
  - Dyspnoea [Recovered/Resolved]
